FAERS Safety Report 25706264 (Version 1)
Quarter: 2025Q3

REPORT INFORMATION
  Report Type: Spontaneous
  Country: CN (occurrence: CN)
  Receive Date: 20250820
  Receipt Date: 20250820
  Transmission Date: 20251021
  Serious: Yes (Other)
  Sender: PFIZER
  Company Number: CN-PFIZER INC-PV202500099333

PATIENT
  Age: 55 Year
  Sex: Male
  Weight: 42 kg

DRUGS (1)
  1. VORICONAZOLE [Suspect]
     Active Substance: VORICONAZOLE
     Indication: Aspergillus infection
     Dosage: 200 MG, 2X/DAY
     Route: 041
     Dates: start: 20250725, end: 20250802

REACTIONS (6)
  - Delirium [Recovering/Resolving]
  - Mania [Recovering/Resolving]
  - Chest discomfort [Recovering/Resolving]
  - Dyspnoea [Recovering/Resolving]
  - Heart rate increased [Recovering/Resolving]
  - Blood pressure systolic increased [Recovering/Resolving]

NARRATIVE: CASE EVENT DATE: 20250803
